FAERS Safety Report 24031024 (Version 1)
Quarter: 2024Q2

REPORT INFORMATION
  Report Type: Spontaneous
  Country: FR (occurrence: FR)
  Receive Date: 20240628
  Receipt Date: 20240628
  Transmission Date: 20240715
  Serious: Yes (Other)
  Sender: FDA-Public Use
  Company Number: None

PATIENT
  Age: 71 Year
  Sex: Female
  Weight: 36 kg

DRUGS (16)
  1. FIDAXOMICIN [Suspect]
     Active Substance: FIDAXOMICIN
     Indication: Infection
     Dosage: PROLONGED PULSED SCHEDULE
     Route: 048
     Dates: start: 20240524
  2. FIDAXOMICIN [Suspect]
     Active Substance: FIDAXOMICIN
     Dosage: DOSE REDUCED
     Route: 048
     Dates: start: 20240530
  3. AMLODIPINE [Concomitant]
     Active Substance: AMLODIPINE BESYLATE
     Dosage: 5MG 2-0-0
     Dates: start: 20240521
  4. VALSARTAN [Concomitant]
     Active Substance: VALSARTAN
     Dosage: 160MG 1-0-0
     Dates: start: 20240521
  5. PANTOPRAZOLE [Concomitant]
     Active Substance: PANTOPRAZOLE
     Dosage: 20MG 2-0-0
     Dates: start: 20240521, end: 20240529
  6. ESOMEPRAZOLE [Concomitant]
     Active Substance: ESOMEPRAZOLE
  7. JARDIANCE [Concomitant]
     Active Substance: EMPAGLIFLOZIN
     Dosage: 10MG 1-0-0
     Dates: start: 20240521
  8. PANCRELIPASE [Concomitant]
     Active Substance: PANCRELIPASE
     Dosage: 40,000 X6/DAY.
  9. ACETAMINOPHEN [Concomitant]
     Active Substance: ACETAMINOPHEN
     Dosage: PARACETAMOL 500MG: 500 TO 1500 MG PER DAY IF NECESSARY
     Dates: start: 20240521
  10. PHLOROGLUCINOL [Concomitant]
     Active Substance: PHLOROGLUCINOL
     Dosage: 80MG 1 TO 3 TABS PER DAY IF NECESSARY
     Dates: start: 20240521
  11. METOCLOPRAMIDE [Concomitant]
     Active Substance: METOCLOPRAMIDE
     Dosage: 10MG 5 TO 15MG PER DAY IF NECESSARY
     Dates: start: 20240521
  12. CALCIUM CARBONATE [Concomitant]
     Active Substance: CALCIUM CARBONATE
     Dosage: 500MG 1-0-0
     Dates: start: 20240524
  13. SODIUM BICARBONATE [Concomitant]
     Active Substance: SODIUM BICARBONATE
     Dosage: 1-1-1
  14. CEFEPIME [Concomitant]
     Active Substance: CEFEPIME HYDROCHLORIDE
     Dosage: 1G 1-0-1
     Dates: start: 20240527, end: 20240529
  15. CEFOTAXIME [Concomitant]
     Active Substance: CEFOTAXIME SODIUM
     Dosage: 1G 2X/D
     Dates: start: 20240529
  16. UNSPECIFIED INGREDIENT [Concomitant]
     Active Substance: UNSPECIFIED INGREDIENT
     Dosage: 25000 IU 2-2-2-2-1
     Dates: start: 20240521

REACTIONS (2)
  - Hepatic cytolysis [Recovering/Resolving]
  - Product use issue [Unknown]

NARRATIVE: CASE EVENT DATE: 20240527
